FAERS Safety Report 4667575-9 (Version None)
Quarter: 2005Q2

REPORT INFORMATION
  Report Type: 
  Country: None (occurrence: None)
  Receive Date: 20050520
  Receipt Date: 20041202
  Transmission Date: 20051028
  Serious: Yes (Other)
  Sender: FDA-Public Use
  Company Number: PHEH2004US12962

PATIENT
  Sex: Female

DRUGS (2)
  1. ZOMETA [Suspect]
     Indication: METASTASES TO BONE
     Dosage: 4 MG (UNSPECIFIED)
  2. CHEMOTHERAPEUTICS,OTHER [Suspect]

REACTIONS (3)
  - DENTAL OPERATION [None]
  - JAW DISORDER [None]
  - OSTEONECROSIS [None]
